FAERS Safety Report 22072107 (Version 1)
Quarter: 2023Q1

REPORT INFORMATION
  Report Type: Other
  Country: None (occurrence: US)
  Receive Date: 20230308
  Receipt Date: 20230308
  Transmission Date: 20230418
  Serious: Yes (Other)
  Sender: FDA-Public Use
  Company Number: US-P+L Developments of Newyork Corporation-2138820

PATIENT
  Age: 27 Year
  Sex: Male

DRUGS (3)
  1. IBUPROFEN [Suspect]
     Active Substance: IBUPROFEN
     Indication: Prophylaxis
     Route: 065
  2. BENZONATATE [Suspect]
     Active Substance: BENZONATATE
     Route: 065
  3. ETHYL ALCOHOL [Suspect]
     Active Substance: ALCOHOL
     Route: 065

REACTIONS (2)
  - Intentional self-injury [Unknown]
  - Intentional product use issue [Unknown]
